FAERS Safety Report 6971289-X (Version None)
Quarter: 2010Q3

REPORT INFORMATION
  Report Type: 
  Country: None (occurrence: None)
  Receive Date: 20100908
  Receipt Date: 20100826
  Transmission Date: 20110219
  Serious: Yes (Hospitalization)
  Sender: FDA-Public Use
  Company Number: FR-JNJFOC-20100901757

PATIENT
  Age: 66 Year
  Sex: Male

DRUGS (3)
  1. ZALDIAR [Suspect]
     Indication: ARTHRALGIA
     Route: 048
  2. ZALDIAR [Suspect]
     Route: 048
  3. BI-PROFENID [Concomitant]

REACTIONS (1)
  - EPILEPSY [None]
